FAERS Safety Report 7944960-0 (Version None)
Quarter: 2011Q4

REPORT INFORMATION
  Report Type: 
  Country: None (occurrence: None)
  Receive Date: 20111129
  Receipt Date: 20111124
  Transmission Date: 20120403
  Serious: Yes (Life-Threatening, Hospitalization, Other)
  Sender: FDA-Public Use
  Company Number: PHHY2011JP68022

PATIENT
  Age: 71 Year
  Sex: Male

DRUGS (12)
  1. TEGRETOL [Suspect]
     Dosage: 1200 MG, DAILY
     Route: 048
     Dates: start: 20110506, end: 20110512
  2. HYDROCORTISONE SODIUM SUCCINATE [Concomitant]
     Route: 042
  3. VOLTAREN [Suspect]
     Dosage: 50 MG, DAILY
     Route: 054
     Dates: start: 20110401, end: 20110501
  4. PAXIL [Concomitant]
     Route: 048
  5. FLIVAS [Concomitant]
     Route: 048
  6. MUCOSTA [Concomitant]
     Route: 048
  7. LOXONIN [Concomitant]
     Route: 048
  8. METHYCOBAL [Concomitant]
     Route: 048
  9. DOGMATYL [Concomitant]
     Route: 048
  10. ADENOSINE [Concomitant]
     Route: 048
  11. TEGRETOL [Suspect]
     Indication: TRIGEMINAL NEURALGIA
     Dosage: 800 MG, DAILY
     Route: 048
     Dates: start: 20110428, end: 20110505
  12. LYRICA [Concomitant]
     Route: 048

REACTIONS (8)
  - VIITH NERVE PARALYSIS [None]
  - THROMBOCYTOPENIA [None]
  - DIZZINESS [None]
  - SALIVARY HYPERSECRETION [None]
  - RASH [None]
  - PYREXIA [None]
  - PLATELET COUNT DECREASED [None]
  - VOMITING [None]
